FAERS Safety Report 7086435-X (Version None)
Quarter: 2010Q4

REPORT INFORMATION
  Report Type: 
  Country: None (occurrence: None)
  Receive Date: 20101028
  Receipt Date: 20100818
  Transmission Date: 20110411
  Serious: No
  Sender: FDA-Public Use
  Company Number: MSTR-NO-1001S-0011

PATIENT
  Age: 64 Year
  Sex: Male
  Weight: 43 kg

DRUGS (2)
  1. METASTRON [Suspect]
     Indication: BONE PAIN
     Dosage: SINGLE DOSE, I.V.
     Route: 042
     Dates: start: 20090813, end: 20090813
  2. METASTRON [Suspect]
     Indication: METASTATIC PAIN
     Dosage: SINGLE DOSE, I.V.
     Route: 042
     Dates: start: 20090813, end: 20090813

REACTIONS (3)
  - HOT FLUSH [None]
  - MALIGNANT NEOPLASM PROGRESSION [None]
  - PROSTATE CANCER [None]
